FAERS Safety Report 16233363 (Version 2)
Quarter: 2019Q2

REPORT INFORMATION
  Report Type: Spontaneous
  Country: EG (occurrence: EG)
  Receive Date: 20190424
  Receipt Date: 20190502
  Transmission Date: 20190711
  Serious: Yes (Congenital Anomaly, Other)
  Sender: FDA-Public Use
  Company Number: EG-ELI_LILLY_AND_COMPANY-EG201904011168

PATIENT

DRUGS (16)
  1. LANTUS [Concomitant]
     Active Substance: INSULIN GLARGINE
     Dosage: 5 IU, AT DINNER
     Route: 058
     Dates: start: 201708
  2. LANTUS [Concomitant]
     Active Substance: INSULIN GLARGINE
     Dosage: 5 IU, AT DINNER
     Route: 058
     Dates: start: 201708
  3. HUMALOG [Suspect]
     Active Substance: INSULIN LISPRO
     Dosage: 10 IU, AT LUNCH
     Route: 058
     Dates: start: 20180528
  4. AMOXICILLIN TRIHYDRATE [Concomitant]
     Active Substance: AMOXICILLIN
     Indication: IMPAIRED HEALING
     Dosage: UNK, UNKNOWN
  5. HUMALOG [Suspect]
     Active Substance: INSULIN LISPRO
     Dosage: 10 IU, AT LUNCH
     Route: 058
     Dates: start: 20180528
  6. HUMALOG [Suspect]
     Active Substance: INSULIN LISPRO
     Dosage: 5 IU, DINNER
     Route: 058
     Dates: start: 20180528
  7. HIBIOTIC [Concomitant]
     Indication: IMPAIRED HEALING
     Dosage: UNK, UNKNOWN
  8. HUMALOG [Suspect]
     Active Substance: INSULIN LISPRO
     Indication: TYPE 2 DIABETES MELLITUS
     Dosage: 15 IU, BREAKFAST
     Route: 058
     Dates: start: 20180528
  9. HUMALOG [Suspect]
     Active Substance: INSULIN LISPRO
     Dosage: 5 IU, DINNER
     Route: 058
     Dates: start: 20180528
  10. LANTUS [Concomitant]
     Active Substance: INSULIN GLARGINE
     Indication: PRODUCT USED FOR UNKNOWN INDICATION
     Dosage: 15 IU, AT BREAKFAST
     Route: 058
     Dates: start: 201708
  11. LANTUS [Concomitant]
     Active Substance: INSULIN GLARGINE
     Indication: PRODUCT USED FOR UNKNOWN INDICATION
     Dosage: 15 IU, AT BREAKFAST
     Route: 058
     Dates: start: 201708
  12. LANTUS [Concomitant]
     Active Substance: INSULIN GLARGINE
     Dosage: 10 IU, AT LUNCH
     Route: 058
     Dates: start: 201708
  13. HIBIOTIC [Concomitant]
     Indication: IMPAIRED HEALING
     Dosage: UNK, UNKNOWN
  14. HUMALOG [Suspect]
     Active Substance: INSULIN LISPRO
     Indication: TYPE 2 DIABETES MELLITUS
     Dosage: 15 IU, BREAKFAST
     Route: 058
     Dates: start: 20180528
  15. AMOXICILLIN TRIHYDRATE [Concomitant]
     Active Substance: AMOXICILLIN
     Indication: IMPAIRED HEALING
     Dosage: UNK, UNKNOWN
  16. LANTUS [Concomitant]
     Active Substance: INSULIN GLARGINE
     Dosage: 10 IU, AT LUNCH
     Route: 058
     Dates: start: 201708

REACTIONS (6)
  - Cleft lip [Unknown]
  - Pulmonary hypertension [Recovered/Resolved]
  - Nasal septum perforation [Recovering/Resolving]
  - Weight decreased [Unknown]
  - Foetal exposure during pregnancy [Recovered/Resolved]
  - Cardiomegaly [Recovered/Resolved]

NARRATIVE: CASE EVENT DATE: 20190410
